FAERS Safety Report 5136497-1 (Version None)
Quarter: 2006Q4

REPORT INFORMATION
  Report Type: 
  Country: None (occurrence: None)
  Receive Date: 20061020
  Receipt Date: 20061006
  Transmission Date: 20070319
  Serious: Yes (Other)
  Sender: FDA-Public Use
  Company Number: 2006001935

PATIENT
  Age: 54 Year
  Sex: Female

DRUGS (2)
  1. TARCEVA [Suspect]
     Indication: NON-SMALL CELL LUNG CANCER
     Dosage: 150 MG (QD), ORAL
     Route: 048
     Dates: start: 20060615
  2. PHENYTOIN [Suspect]
     Dosage: 100 MG, BID, ORAL
     Route: 048
     Dates: start: 20060301

REACTIONS (1)
  - ANTICONVULSANT DRUG LEVEL INCREASED [None]
